FAERS Safety Report 5480291-9 (Version None)
Quarter: 2007Q4

REPORT INFORMATION
  Report Type: 
  Country: None (occurrence: None)
  Receive Date: 20071003
  Receipt Date: 20070921
  Transmission Date: 20080405
  Serious: Yes (Hospitalization)
  Sender: FDA-Public Use
  Company Number: 2007JP001761

PATIENT
  Age: 78 Year
  Sex: Female
  Weight: 35.5 kg

DRUGS (10)
  1. FUNGUARD(MICAFUNGIN) INJECTION [Suspect]
     Indication: BRONCHOPULMONARY ASPERGILLOSIS
     Dosage: 150 MG, UID/QD, IV DRIP
     Route: 041
     Dates: start: 20070329, end: 20070409
  2. PL GRAN.(CAFFEINE, PARACETAMOL, PROMETHAZINE METHYLENE DISALICYLATE, S [Suspect]
     Indication: NASOPHARYNGITIS
     Dosage: 1 G, TID, ORAL
     Route: 048
     Dates: start: 20070407, end: 20070408
  3. DIOVAN [Concomitant]
  4. UNIPHYL [Concomitant]
  5. MUCODYNE (CARBOCISTEINE) [Concomitant]
  6. GASTER D ORODISPERSABLE CR [Concomitant]
  7. MEDICON (DEXTROMETHORPHAN HYDROBROMIDE) [Concomitant]
  8. SP (DEQUALINIUM CHLORIDE) [Concomitant]
  9. OZEX (TOSUFLOXACIN TOSILATE) [Concomitant]
  10. ZOLPIDEM TARTRATE [Concomitant]

REACTIONS (4)
  - ATRIAL FIBRILLATION [None]
  - DISSEMINATED INTRAVASCULAR COAGULATION [None]
  - DRUG RASH WITH EOSINOPHILIA AND SYSTEMIC SYMPTOMS [None]
  - HEPATIC FUNCTION ABNORMAL [None]
